FAERS Safety Report 9449197 (Version 2)
Quarter: 2013Q3

REPORT INFORMATION
  Report Type: Spontaneous
  Country: US (occurrence: US)
  Receive Date: 20130808
  Receipt Date: 20130909
  Transmission Date: 20140515
  Serious: Yes (Hospitalization, Other)
  Sender: FDA-Public Use
  Company Number: US-CELGENEUS-163-POMAL-13080867

PATIENT
  Age: 70 Year
  Sex: Male

DRUGS (26)
  1. POMALYST [Suspect]
     Indication: CHRONIC LYMPHOCYTIC LEUKAEMIA
     Dosage: 4 MILLIGRAM
     Route: 048
     Dates: start: 201304, end: 2013
  2. POMALYST [Suspect]
     Dosage: 4 MILLIGRAM
     Route: 048
     Dates: start: 201307
  3. POMALYST [Suspect]
     Dosage: 2 MILLIGRAM
     Route: 048
     Dates: start: 201307
  4. RED CELLS [Concomitant]
     Indication: PRODUCT USED FOR UNKNOWN INDICATION
     Route: 041
  5. PLATELETS [Concomitant]
     Indication: PRODUCT USED FOR UNKNOWN INDICATION
     Route: 041
  6. DEXAMETHASONE [Concomitant]
     Indication: PRODUCT USED FOR UNKNOWN INDICATION
     Route: 048
  7. MS CONTIN [Concomitant]
     Indication: PRODUCT USED FOR UNKNOWN INDICATION
     Dosage: 30 MILLIGRAM
     Route: 048
  8. OXYCODONE [Concomitant]
     Indication: PAIN
     Dosage: 30 MILLIGRAM
     Route: 048
  9. OXYCODONE [Concomitant]
     Dosage: 90 MILLIGRAM
     Route: 048
  10. LORAZEPAM [Concomitant]
     Indication: NAUSEA
     Dosage: 2 MILLIGRAM
     Route: 048
  11. LORAZEPAM [Concomitant]
     Indication: ANXIETY
  12. LIPITOR [Concomitant]
     Indication: PRODUCT USED FOR UNKNOWN INDICATION
     Dosage: 20 MILLIGRAM
     Route: 048
  13. ACYCLOVIR [Concomitant]
     Indication: PRODUCT USED FOR UNKNOWN INDICATION
     Dosage: 1200 MILLIGRAM
     Route: 048
     Dates: start: 20111021
  14. ACYCLOVIR [Concomitant]
     Dosage: 800 MILLIGRAM
     Route: 048
  15. BACLOFEN [Concomitant]
     Indication: MUSCLE SPASMS
     Dosage: 40 MILLIGRAM
     Route: 048
  16. BACLOFEN [Concomitant]
     Dosage: 30 MILLIGRAM
     Route: 048
  17. BACTRIM DS [Concomitant]
     Indication: PRODUCT USED FOR UNKNOWN INDICATION
     Dosage: 800-160MG
     Route: 048
  18. BACTRIM DS [Concomitant]
     Dosage: 800-160MG
     Route: 048
  19. NITROGLYCERIN SL [Concomitant]
     Indication: PRODUCT USED FOR UNKNOWN INDICATION
     Dosage: 115.2 MILLIGRAM
     Route: 060
  20. METOPROLOL [Concomitant]
     Indication: PRODUCT USED FOR UNKNOWN INDICATION
     Dosage: 25 MILLIGRAM
     Route: 048
  21. LIDOCAINE-PRILOCAINE [Concomitant]
     Indication: PRODUCT USED FOR UNKNOWN INDICATION
     Route: 061
  22. PROCHLORPERAZINE [Concomitant]
     Indication: NAUSEA
     Dosage: 30 MILLIGRAM
     Route: 048
     Dates: start: 20111017
  23. PROCHLORPERAZINE [Concomitant]
     Indication: VOMITING
  24. FAMOTIDINE [Concomitant]
     Indication: PRODUCT USED FOR UNKNOWN INDICATION
     Dosage: 20 MILLIGRAM
     Route: 048
  25. NORCO [Concomitant]
     Indication: PRODUCT USED FOR UNKNOWN INDICATION
     Route: 065
  26. MULTIVITAMINS [Concomitant]
     Indication: PRODUCT USED FOR UNKNOWN INDICATION
     Route: 065

REACTIONS (2)
  - Septic shock [Unknown]
  - Pancytopenia [Unknown]
